FAERS Safety Report 4769823-3 (Version None)
Quarter: 2005Q3

REPORT INFORMATION
  Report Type: 
  Country: None (occurrence: None)
  Receive Date: 20050912
  Receipt Date: 20050729
  Transmission Date: 20060218
  Serious: No
  Sender: FDA-Public Use
  Company Number: M04-341-121

PATIENT
  Age: 74 Year
  Sex: Female
  Weight: 68 kg

DRUGS (4)
  1. VELCADE [Suspect]
     Indication: MULTIPLE MYELOMA
     Dosage: 2.10 MG, IV BOLUS
     Route: 040
  2. ANTIHYPERTENSIVES [Concomitant]
  3. KYTRIL [Concomitant]
  4. DECADRON [Concomitant]

REACTIONS (1)
  - PAIN IN EXTREMITY [None]
